FAERS Safety Report 7486863-4 (Version None)
Quarter: 2011Q2

REPORT INFORMATION
  Report Type: 
  Country: None (occurrence: None)
  Receive Date: 20110517
  Receipt Date: 20110510
  Transmission Date: 20111010
  Serious: Yes (Other)
  Sender: FDA-Public Use
  Company Number: US-US-EMD SERONO, INC.-231892J10USA

PATIENT
  Sex: Male
  Weight: 100 kg

DRUGS (4)
  1. PROVIGIL [Concomitant]
     Indication: FATIGUE
     Route: 048
     Dates: start: 19980101
  2. REBIF [Suspect]
     Indication: MULTIPLE SCLEROSIS
     Route: 058
     Dates: start: 20030301, end: 20110201
  3. MORPHINE [Concomitant]
     Indication: BACK PAIN
  4. PREDNISONE [Concomitant]
     Indication: PRODUCT USED FOR UNKNOWN INDICATION
     Route: 048

REACTIONS (4)
  - INJECTION SITE ERYTHEMA [None]
  - INJECTION SITE PAIN [None]
  - RHEUMATOID ARTHRITIS [None]
  - INJECTION SITE NODULE [None]
